FAERS Safety Report 7274549-0 (Version None)
Quarter: 2011Q1

REPORT INFORMATION
  Report Type: 
  Country: None (occurrence: None)
  Receive Date: 20110201
  Receipt Date: 20110201
  Transmission Date: 20110831
  Serious: No
  Sender: FDA-Public Use
  Company Number: None

PATIENT
  Age: 88 Year
  Sex: Male

DRUGS (1)
  1. MULTAQ [Suspect]

REACTIONS (9)
  - HEART RATE INCREASED [None]
  - FLUID RETENTION [None]
  - DYSPNOEA [None]
  - GAIT DISTURBANCE [None]
  - PNEUMONIA [None]
  - WEIGHT INCREASED [None]
  - DIZZINESS [None]
  - ALOPECIA [None]
  - ASTHMA [None]
